FAERS Safety Report 9227825 (Version 1)
Quarter: 2013Q2

REPORT INFORMATION
  Report Type: Report from Study
  Country: SE (occurrence: SE)
  Receive Date: 20130412
  Receipt Date: 20130412
  Transmission Date: 20140414
  Serious: Yes (Death)
  Sender: FDA-Public Use
  Company Number: SE-ROCHE-1207448

PATIENT
  Age: 79 Year
  Sex: Female
  Weight: 70 kg

DRUGS (12)
  1. LANACRIST [Concomitant]
     Indication: ATRIAL FIBRILLATION
     Dosage: 0.5 + 0.25 MG
     Route: 042
     Dates: start: 19970730
  2. LANACRIST [Concomitant]
     Route: 065
     Dates: start: 19970731
  3. LANACRIST [Concomitant]
     Route: 065
     Dates: start: 19970802, end: 19970803
  4. DIGOXIN [Concomitant]
     Indication: ATRIAL FIBRILLATION
     Route: 042
     Dates: start: 19970730, end: 19970730
  5. ISOPTIN [Concomitant]
     Indication: ATRIAL FIBRILLATION
     Route: 042
     Dates: start: 19970731, end: 19970731
  6. FURIX [Concomitant]
     Indication: ATRIAL FIBRILLATION
     Route: 042
     Dates: start: 19970731, end: 19970731
  7. PANODIL [Concomitant]
     Route: 048
     Dates: start: 19970731
  8. PANODIL [Concomitant]
     Route: 048
     Dates: start: 19970801
  9. PANODIL [Concomitant]
     Route: 048
     Dates: start: 19970803, end: 19970804
  10. FRAGMIN [Concomitant]
     Indication: THROMBOSIS PROPHYLAXIS
     Route: 058
     Dates: start: 19970801, end: 19970803
  11. PRIMPERAN (SWEDEN) [Concomitant]
     Indication: NAUSEA
     Route: 065
     Dates: start: 19970801, end: 19970801
  12. ALTEPLASE [Suspect]
     Indication: ISCHAEMIC STROKE
     Route: 065

REACTIONS (1)
  - Brain oedema [Fatal]
